FAERS Safety Report 12642084 (Version 2)
Quarter: 2016Q3

REPORT INFORMATION
  Report Type: Spontaneous
  Country: GB (occurrence: GB)
  Receive Date: 20160810
  Receipt Date: 20160826
  Transmission Date: 20161109
  Serious: Yes (Hospitalization, Other)
  Sender: FDA-Public Use
  Company Number: GB-BRISTOL-MYERS SQUIBB COMPANY-BMS-2016-063964

PATIENT
  Age: 85 Year
  Sex: Male

DRUGS (1)
  1. ELIQUIS [Suspect]
     Active Substance: APIXABAN
     Indication: PRODUCT USED FOR UNKNOWN INDICATION
     Dosage: UNK
     Route: 065

REACTIONS (8)
  - Myocardial infarction [Unknown]
  - Abdominal mass [Unknown]
  - Mobility decreased [Unknown]
  - Confusional state [Unknown]
  - Infection [Unknown]
  - Incontinence [Unknown]
  - Decreased appetite [Unknown]
  - Fluid retention [Unknown]

NARRATIVE: CASE EVENT DATE: 20160817
